FAERS Safety Report 9486728 (Version 1)
Quarter: 2013Q3

REPORT INFORMATION
  Report Type: Spontaneous
  Country: US (occurrence: US)
  Receive Date: 20130829
  Receipt Date: 20130829
  Transmission Date: 20140515
  Serious: No
  Sender: FDA-Public Use
  Company Number: US-BRISTOL-MYERS SQUIBB COMPANY-18915025

PATIENT
  Sex: Male

DRUGS (2)
  1. KOMBOGLYZE [Suspect]
     Indication: DIABETES MELLITUS
     Route: 048
  2. VITAMINS [Concomitant]

REACTIONS (1)
  - Urticaria [Unknown]
